FAERS Safety Report 6082341-8 (Version None)
Quarter: 2009Q1

REPORT INFORMATION
  Report Type: 
  Country: None (occurrence: None)
  Receive Date: 20090130
  Receipt Date: 20081112
  Transmission Date: 20090719
  Serious: Yes (Other)
  Sender: FDA-Public Use
  Company Number: US024793

PATIENT
  Age: 32 Year
  Sex: Female
  Weight: 49.8957 kg

DRUGS (4)
  1. AMRIX [Suspect]
     Indication: MUSCLE SPASMS
     Dosage: 30 MG (30 MG, 1 IN 1 D), ORAL
     Route: 048
     Dates: start: 20080822, end: 20080823
  2. NEURONTIN [Concomitant]
  3. PERCOCET [Concomitant]
  4. OXYCONTIN [Concomitant]

REACTIONS (1)
  - GRAND MAL CONVULSION [None]
